FAERS Safety Report 10460219 (Version 1)
Quarter: 2014Q3

REPORT INFORMATION
  Report Type: Spontaneous
  Country: TW (occurrence: TW)
  Receive Date: 20140917
  Receipt Date: 20140917
  Transmission Date: 20150326
  Serious: Yes (Other)
  Sender: FDA-Public Use
  Company Number: PHHY2014TW117096

PATIENT
  Age: 41 Year
  Sex: Male

DRUGS (1)
  1. VERAPAMIL [Suspect]
     Active Substance: VERAPAMIL HYDROCHLORIDE
     Dosage: 15 DF, UNK

REACTIONS (13)
  - Carotid pulse decreased [Recovered/Resolved]
  - Cold sweat [Recovered/Resolved]
  - Ascites [Recovered/Resolved]
  - Hypotension [Recovered/Resolved]
  - Altered state of consciousness [Recovered/Resolved]
  - Cardiac arrest [Recovered/Resolved]
  - Gallbladder oedema [Recovered/Resolved]
  - Peripheral coldness [Recovered/Resolved]
  - Pulseless electrical activity [Recovered/Resolved]
  - Periportal oedema [Recovered/Resolved]
  - Inferior vena cava dilatation [Recovered/Resolved]
  - Suicide attempt [Recovered/Resolved]
  - Intentional overdose [Recovered/Resolved]
